FAERS Safety Report 12155882 (Version 4)
Quarter: 2016Q2

REPORT INFORMATION
  Report Type: Report from Study
  Country: FR (occurrence: FR)
  Receive Date: 20160307
  Receipt Date: 20160614
  Transmission Date: 20160815
  Serious: Yes (Hospitalization, Other)
  Sender: FDA-Public Use
  Company Number: FR-ASTELLAS-2015US024963

PATIENT
  Age: 31 Year
  Sex: Male

DRUGS (6)
  1. MYFORTIC [Suspect]
     Active Substance: MYCOPHENOLATE SODIUM
     Indication: RENAL TRANSPLANT
     Route: 048
     Dates: start: 20150609
  2. TACROLIMUS. [Suspect]
     Active Substance: TACROLIMUS
     Route: 048
     Dates: start: 20150701
  3. TACROLIMUS. [Suspect]
     Active Substance: TACROLIMUS
     Indication: RENAL TRANSPLANT
     Dosage: 5 MG, DAILY, 1 HOUR BEFORE OR 2 HOURS AFTER MEAL
     Route: 048
     Dates: start: 20150619
  4. SOLUPRED                           /00016201/ [Suspect]
     Active Substance: PREDNISOLONE
     Indication: RENAL TRANSPLANT
     Dosage: 10 MG, EVERY OTHER DAY, ALTERNATE WITH 5 MG EVERY OTHER DAY
     Route: 048
     Dates: start: 20150930
  5. PROGRAF [Suspect]
     Active Substance: TACROLIMUS\TACROLIMUS ANHYDROUS
     Indication: RENAL TRANSPLANT
     Dosage: 5 MG, DAILY
     Route: 048
  6. SOLUPRED                           /00016201/ [Suspect]
     Active Substance: PREDNISOLONE
     Dosage: 5 MG, EVERY OTHER DAY, ALTERNATE WITH 10 MG EVERY OTHER DAY
     Route: 048
     Dates: start: 20150930

REACTIONS (5)
  - Pneumothorax spontaneous [Recovered/Resolved]
  - Transplant rejection [Unknown]
  - Leukocytosis [Recovered/Resolved]
  - Influenza like illness [Recovered/Resolved]
  - Faeces soft [Recovering/Resolving]

NARRATIVE: CASE EVENT DATE: 20151001
